FAERS Safety Report 25341842 (Version 3)
Quarter: 2025Q3

REPORT INFORMATION
  Report Type: Report from Study
  Country: US (occurrence: US)
  Receive Date: 20250521
  Receipt Date: 20250930
  Transmission Date: 20251020
  Serious: Yes (Other)
  Sender: SUNOVION
  Company Number: US-SUMITOMO PHARMA SWITZERLAND GMBH-2025SPA005181

PATIENT
  Age: 83 Year
  Sex: Male

DRUGS (14)
  1. ORGOVYX [Suspect]
     Active Substance: RELUGOLIX
     Indication: Prostate cancer
     Dosage: 360 MG, SINGLE
     Route: 048
     Dates: start: 2023, end: 2023
  2. ORGOVYX [Suspect]
     Active Substance: RELUGOLIX
     Dosage: 120 MG, QD
     Route: 048
     Dates: start: 2023
  3. LISINOPRIL [Suspect]
     Active Substance: LISINOPRIL
     Indication: Product used for unknown indication
  4. ABIRATERONE ACETATE [Concomitant]
     Active Substance: ABIRATERONE ACETATE
  5. ASPIRIN [Concomitant]
     Active Substance: ASPIRIN
  6. ATORVASTATIN [Concomitant]
     Active Substance: ATORVASTATIN
  7. CALCIUM [Concomitant]
     Active Substance: CALCIUM
  8. GLUCOSAMINE [Concomitant]
     Active Substance: GLUCOSAMINE
  9. JAKAFI [Concomitant]
     Active Substance: RUXOLITINIB
  10. OMEPRAZOLE [Concomitant]
     Active Substance: OMEPRAZOLE
  11. POTASSIUM [Concomitant]
     Active Substance: POTASSIUM
  12. SILDENAFIL [Concomitant]
     Active Substance: SILDENAFIL
  13. VALSARTAN [Concomitant]
     Active Substance: VALSARTAN
  14. XARELTO [Concomitant]
     Active Substance: RIVAROXABAN

REACTIONS (6)
  - Pulmonary embolism [Unknown]
  - Blister [Unknown]
  - Rash pruritic [Unknown]
  - Cough [Recovered/Resolved]
  - Mood swings [Unknown]
  - Fatigue [Unknown]
